FAERS Safety Report 8234307-7 (Version None)
Quarter: 2012Q1

REPORT INFORMATION
  Report Type: 
  Country: None (occurrence: None)
  Receive Date: 20120326
  Receipt Date: 20120319
  Transmission Date: 20120608
  Serious: Yes (Hospitalization)
  Sender: FDA-Public Use
  Company Number: FR-ROCHE-1050646

PATIENT
  Sex: Male

DRUGS (9)
  1. LASIX [Concomitant]
     Route: 048
  2. CALCIUM CARBONATE [Concomitant]
  3. AVODART [Concomitant]
     Route: 048
  4. PREDNISOLONE [Concomitant]
     Route: 048
     Dates: start: 20120128, end: 20120130
  5. ROCEPHIN [Suspect]
     Indication: PRODUCT USED FOR UNKNOWN INDICATION
     Dosage: POWDER FORM
     Route: 058
     Dates: start: 20120128, end: 20120130
  6. PREVISCAN [Suspect]
     Indication: PRODUCT USED FOR UNKNOWN INDICATION
     Route: 048
  7. TRIATEC 5 [Concomitant]
     Route: 048
  8. VITAMIN D [Concomitant]
  9. FORLAX (FRANCE) [Concomitant]

REACTIONS (3)
  - RECTAL HAEMORRHAGE [None]
  - INTERNATIONAL NORMALISED RATIO INCREASED [None]
  - DRUG INTERACTION [None]
